FAERS Safety Report 22164794 (Version 2)
Quarter: 2023Q2

REPORT INFORMATION
  Report Type: Spontaneous
  Country: US (occurrence: None)
  Receive Date: 20230403
  Receipt Date: 20230417
  Transmission Date: 20230722
  Serious: No
  Sender: FDA-Public Use
  Company Number: 2023A066964

PATIENT
  Age: 89 Year
  Sex: Female
  Weight: 48 kg

DRUGS (3)
  1. BYDUREON BCISE [Suspect]
     Active Substance: EXENATIDE
     Indication: Type 2 diabetes mellitus
     Route: 058
     Dates: start: 20220816
  2. OZEMPIC [Suspect]
     Active Substance: SEMAGLUTIDE
  3. METFORMIN [Suspect]
     Active Substance: METFORMIN HYDROCHLORIDE

REACTIONS (6)
  - Injection site mass [Not Recovered/Not Resolved]
  - Increased appetite [Not Recovered/Not Resolved]
  - Lipohypertrophy [Not Recovered/Not Resolved]
  - Weight increased [Unknown]
  - Diarrhoea [Unknown]
  - Injection site discomfort [Not Recovered/Not Resolved]
